FAERS Safety Report 6874553-8 (Version None)
Quarter: 2010Q3

REPORT INFORMATION
  Report Type: 
  Country: None (occurrence: None)
  Receive Date: 20100722
  Receipt Date: 20100708
  Transmission Date: 20110219
  Serious: No
  Sender: FDA-Public Use
  Company Number: DSJ-2010-10439

PATIENT
  Age: 78 Year
  Sex: Male
  Weight: 73 kg

DRUGS (1)
  1. OLMETEC (OLOMESARTAN MEDOXOMIL) (TABLET) (OLMESARTAN MEDOXOMIL) [Suspect]
     Indication: ESSENTIAL HYPERTENSION
     Dosage: 10 MG, PER ORAL
     Route: 048
     Dates: start: 20100319, end: 20100416

REACTIONS (2)
  - BLOOD PRESSURE DECREASED [None]
  - DIZZINESS [None]
